FAERS Safety Report 14492883 (Version 2)
Quarter: 2018Q1

REPORT INFORMATION
  Report Type: Spontaneous
  Country: US (occurrence: US)
  Receive Date: 20180206
  Receipt Date: 20180317
  Transmission Date: 20180509
  Serious: No
  Sender: FDA-Public Use
  Company Number: US-JNJFOC-20171229800

PATIENT
  Age: 25 Year
  Sex: Male

DRUGS (3)
  1. TRAZODONE [Concomitant]
     Active Substance: TRAZODONE HYDROCHLORIDE
     Indication: SLEEP DISORDER
     Dosage: ONCE AT NIGHT
     Route: 065
     Dates: start: 2014
  2. PRAZOSIN. [Concomitant]
     Active Substance: PRAZOSIN
     Indication: SLEEP TERROR
     Dosage: ONCE AT NIGHT
     Route: 065
     Dates: start: 20171030
  3. INVEGA SUSTENNA [Suspect]
     Active Substance: PALIPERIDONE PALMITATE
     Indication: SCHIZOPHRENIA
     Route: 030
     Dates: start: 20171221

REACTIONS (5)
  - Needle issue [Unknown]
  - Drug dose omission [Unknown]
  - Accidental exposure to product [Unknown]
  - Product leakage [Unknown]
  - Self-medication [Unknown]

NARRATIVE: CASE EVENT DATE: 20171221
